FAERS Safety Report 9061572 (Version 1)
Quarter: 2013Q1

REPORT INFORMATION
  Report Type: Spontaneous
  Country: US (occurrence: None)
  Receive Date: 20130208
  Receipt Date: 20130208
  Transmission Date: 20140127
  Serious: Yes (Hospitalization)
  Sender: FDA-Public Use
  Company Number: None

PATIENT
  Age: 38 Year
  Sex: Male
  Weight: 107.5 kg

DRUGS (1)
  1. QUETIAPINE [Suspect]
     Indication: SCHIZOPHRENIA
     Dates: start: 20120501, end: 20130124

REACTIONS (5)
  - Somnolence [None]
  - Fall [None]
  - Heart rate increased [None]
  - Hyperglycaemia [None]
  - Head injury [None]
